FAERS Safety Report 8788700 (Version 2)
Quarter: 2012Q4

REPORT INFORMATION
  Report Type: 
  Country: JP (occurrence: JP)
  Receive Date: 20120916
  Receipt Date: 20121008
  Transmission Date: 20130627
  Serious: Yes (Other)
  Sender: FDA-Public Use
  Company Number: PHHY2012JP080210

PATIENT
  Sex: Male

DRUGS (1)
  1. VOLTAREN [Suspect]
     Indication: POSTOPERATIVE FEVER
     Dosage: 25 mg daily
     Route: 054

REACTIONS (3)
  - Hypothermia [Unknown]
  - Blood pressure decreased [Unknown]
  - Heart rate decreased [Unknown]
